FAERS Safety Report 12586469 (Version 2)
Quarter: 2016Q3

REPORT INFORMATION
  Report Type: Spontaneous
  Country: US (occurrence: US)
  Receive Date: 20160725
  Receipt Date: 20160817
  Transmission Date: 20161109
  Serious: No
  Sender: FDA-Public Use
  Company Number: US-PFIZER INC-2016320191

PATIENT
  Age: 77 Year
  Sex: Female
  Weight: 64 kg

DRUGS (3)
  1. TOLTERODINE TARTRATE. [Suspect]
     Active Substance: TOLTERODINE TARTRATE
     Dosage: UNK
  2. PREDNISONE. [Concomitant]
     Active Substance: PREDNISONE
     Indication: MYALGIA
     Dosage: 20 MG, UNK
     Dates: end: 2016
  3. OXYBUTYNIN [Suspect]
     Active Substance: OXYBUTYNIN
     Indication: INCONTINENCE
     Dosage: 5 MG, 2X/DAY
     Route: 048
     Dates: start: 201601

REACTIONS (1)
  - Drug ineffective [Recovered/Resolved]
